FAERS Safety Report 6667888-5 (Version None)
Quarter: 2010Q2

REPORT INFORMATION
  Report Type: 
  Country: None (occurrence: None)
  Receive Date: 20100405
  Receipt Date: 20100325
  Transmission Date: 20101027
  Serious: Yes (Hospitalization)
  Sender: FDA-Public Use
  Company Number: US-MYLANLABS-2010S1000369

PATIENT
  Age: 69 Year
  Sex: Female
  Weight: 71.67 kg

DRUGS (17)
  1. PINDOLOL [Suspect]
     Indication: HYPERTENSION
     Dates: start: 20090501, end: 20091102
  2. CELECOXIB [Suspect]
     Indication: RHEUMATOID ARTHRITIS
     Route: 048
     Dates: start: 20080731, end: 20091019
  3. IBUPROFEN [Suspect]
     Indication: OSTEOARTHRITIS
     Route: 048
     Dates: start: 20080731, end: 20091019
  4. NAPROXEN [Suspect]
     Route: 048
     Dates: start: 20091112
  5. PLACEBO [Suspect]
     Route: 048
     Dates: start: 20091112
  6. NEXIUM [Concomitant]
     Dates: start: 20050901
  7. ALENDRONATE SODIUM [Suspect]
     Dates: start: 20020314
  8. VITAMIN C [Concomitant]
     Dates: start: 20040505
  9. ASPIRIN [Concomitant]
     Dates: start: 20050921
  10. CALCIUM CARBONATE W/VITAMIN D /00944201/ [Concomitant]
     Dates: start: 20050921
  11. FISH OIL [Concomitant]
     Dates: start: 20040601
  12. PREMARIN [Concomitant]
     Dates: start: 20020314
  13. SYNTHROID [Concomitant]
     Dates: start: 20020314
  14. VITAMIN B-12 [Concomitant]
     Dates: start: 20080917
  15. METHOTREXATE [Concomitant]
     Dates: start: 20090422
  16. LISINOPRIL [Concomitant]
     Dates: start: 20090501
  17. FOLIC ACID [Concomitant]
     Dates: start: 20081001

REACTIONS (2)
  - HYPOTENSION [None]
  - INTERVERTEBRAL DISC DEGENERATION [None]
